FAERS Safety Report 11166405 (Version 1)
Quarter: 2015Q2

REPORT INFORMATION
  Report Type: Spontaneous
  Country: US (occurrence: US)
  Receive Date: 20150605
  Receipt Date: 20150605
  Transmission Date: 20150821
  Serious: No
  Sender: FDA-Public Use
  Company Number: US-JNJFOC-20150502316

PATIENT
  Sex: Female

DRUGS (1)
  1. HALOPERIDOL DECANOATE. [Suspect]
     Active Substance: HALOPERIDOL DECANOATE
     Indication: INJURY ASSOCIATED WITH DEVICE
     Route: 030

REACTIONS (2)
  - Device damage [Unknown]
  - Product package associated injury [Unknown]

NARRATIVE: CASE EVENT DATE: 20150501
